FAERS Safety Report 4909266-2 (Version None)
Quarter: 2006Q1

REPORT INFORMATION
  Report Type: 
  Country: None (occurrence: None)
  Receive Date: 20060208
  Receipt Date: 20060208
  Transmission Date: 20060701
  Serious: No
  Sender: FDA-Public Use
  Company Number: None

PATIENT
  Age: 54 Year
  Sex: Male
  Weight: 76.2043 kg

DRUGS (6)
  1. TRIGLIDE [Suspect]
     Indication: BLOOD TRIGLYCERIDES INCREASED
     Dosage: 160 MG PO DAILY
     Route: 048
     Dates: start: 20051220
  2. TRIGLIDE [Suspect]
     Indication: BLOOD TRIGLYCERIDES INCREASED
     Dosage: 160 MG PO DAILY
     Route: 048
     Dates: start: 20060123
  3. LIPITOR [Concomitant]
  4. NIACIN [Concomitant]
  5. METOPROLOL TARTRATE [Concomitant]
  6. VIT E 400IU [Concomitant]

REACTIONS (3)
  - PRURITUS [None]
  - RASH ERYTHEMATOUS [None]
  - URTICARIA [None]
